FAERS Safety Report 4902233-4 (Version None)
Quarter: 2006Q1

REPORT INFORMATION
  Report Type: 
  Country: None (occurrence: None)
  Receive Date: 20060202
  Receipt Date: 20060120
  Transmission Date: 20060701
  Serious: Yes (Hospitalization)
  Sender: FDA-Public Use
  Company Number: 221317

PATIENT
  Age: 80 Year
  Sex: Female
  Weight: 57 kg

DRUGS (3)
  1. AVASTIN [Suspect]
     Indication: PANCREATIC CARCINOMA
     Dosage: 15 MG/KG, QDX2D/14DC, INTRAVENOUS
     Route: 042
     Dates: start: 20050803, end: 20051223
  2. GEMCITABINE (GEMCITABINE HYDROCHLORIDE) [Suspect]
     Indication: PANCREATIC CARCINOMA
     Dosage: 1000 MG/M2, Q2W, INTRAVENOUS
     Route: 042
     Dates: start: 20050803, end: 20051223
  3. CAPECITABINE (CAPECITABINE) [Suspect]
     Indication: PANCREATIC CARCINOMA
     Dosage: 650 MG/M2
     Dates: start: 20050803, end: 20051223

REACTIONS (2)
  - BILE DUCT STENT INSERTION [None]
  - PNEUMONIA [None]
